FAERS Safety Report 6426871-5 (Version None)
Quarter: 2009Q4

REPORT INFORMATION
  Report Type: 
  Country: None (occurrence: None)
  Receive Date: 20091103
  Receipt Date: 20091103
  Transmission Date: 20100525
  Serious: Yes (Hospitalization)
  Sender: FDA-Public Use
  Company Number: None

PATIENT
  Age: 55 Year
  Sex: Male

DRUGS (1)
  1. LINEZOLID [Suspect]
     Indication: OSTEOMYELITIS
     Dosage: 600 MG BID PO
     Route: 048
     Dates: start: 20081008, end: 20081112

REACTIONS (2)
  - BONE MARROW FAILURE [None]
  - PLATELET COUNT DECREASED [None]
